FAERS Safety Report 16624354 (Version 1)
Quarter: 2019Q3

REPORT INFORMATION
  Report Type: Spontaneous
  Country: US (occurrence: US)
  Receive Date: 20190724
  Receipt Date: 20190724
  Transmission Date: 20191004
  Serious: Yes (Hospitalization, Other)
  Sender: FDA-Public Use
  Company Number: US-SUN PHARMACEUTICAL INDUSTRIES LTD-2019R1-214730

PATIENT
  Age: 83 Year
  Sex: Female

DRUGS (1)
  1. BACTRIM [Suspect]
     Active Substance: SULFAMETHOXAZOLE\TRIMETHOPRIM
     Indication: LOCALISED INFECTION
     Dosage: UNK
     Route: 065

REACTIONS (8)
  - Asthenia [Unknown]
  - Pneumonia [Unknown]
  - Respiratory failure [Unknown]
  - Apparent death [Unknown]
  - Renal failure [Unknown]
  - Dizziness [Not Recovered/Not Resolved]
  - Blister [Unknown]
  - Hip fracture [Unknown]
